FAERS Safety Report 18289113 (Version 1)
Quarter: 2020Q3

REPORT INFORMATION
  Report Type: Spontaneous
  Country: DK (occurrence: DK)
  Receive Date: 20200921
  Receipt Date: 20200921
  Transmission Date: 20201103
  Serious: Yes (Other)
  Sender: FDA-Public Use
  Company Number: DK-OTSUKA-2018_015881

PATIENT
  Age: 34 Year
  Sex: Female

DRUGS (5)
  1. CITALOPRAM ORIFARM [Suspect]
     Active Substance: CITALOPRAM HYDROBROMIDE
     Dosage: 10 MG, QD
     Route: 048
     Dates: end: 20170125
  2. CITALOPRAM ORIFARM [Suspect]
     Active Substance: CITALOPRAM HYDROBROMIDE
     Indication: DEPRESSION
     Dosage: 20 MG, QD
     Route: 048
     Dates: start: 2013
  3. ABILIFY [Suspect]
     Active Substance: ARIPIPRAZOLE
     Indication: SCHIZOPHRENIA
     Dosage: UNK
     Route: 065
     Dates: start: 20130520
  4. ABILIFY [Suspect]
     Active Substance: ARIPIPRAZOLE
     Dosage: 10 MG, QD (1 A DAY)
     Route: 048
     Dates: start: 20160520, end: 20161005
  5. ABILIFY [Suspect]
     Active Substance: ARIPIPRAZOLE
     Dosage: 2 DF, QD (2 TBL. OF 10 MG X 1 DGL)
     Route: 048
     Dates: start: 20161005, end: 20170109

REACTIONS (4)
  - Hypersomnia [Recovered/Resolved]
  - Feeling abnormal [Recovered/Resolved]
  - Atrial fibrillation [Unknown]
  - Cyanosis [Unknown]

NARRATIVE: CASE EVENT DATE: 201605
